FAERS Safety Report 5455962-0 (Version None)
Quarter: 2007Q3

REPORT INFORMATION
  Report Type: 
  Country: None (occurrence: None)
  Receive Date: 20070914
  Receipt Date: 20070906
  Transmission Date: 20080115
  Serious: Yes (Other)
  Sender: FDA-Public Use
  Company Number: CHPA2007US09233

PATIENT
  Age: 91 Year
  Sex: Female
  Weight: 41.3 kg

DRUGS (1)
  1. TRANSDERM SCOP [Suspect]
     Indication: INCREASED UPPER AIRWAY SECRETION
     Dosage: 1.5 MG, ABOUT TWO WEEKS EARLIER, TRANSDERMAL
     Route: 062

REACTIONS (7)
  - CONFUSIONAL STATE [None]
  - COUGH [None]
  - DRUG TOXICITY [None]
  - HALLUCINATION [None]
  - OVERDOSE [None]
  - RESTLESSNESS [None]
  - SLEEP TALKING [None]
